FAERS Safety Report 5257061-X (Version None)
Quarter: 2007Q1

REPORT INFORMATION
  Report Type: 
  Country: None (occurrence: None)
  Receive Date: 20070305
  Receipt Date: 20070305
  Transmission Date: 20070707
  Serious: Yes (Death, Other)
  Sender: FDA-Public Use
  Company Number: None

PATIENT
  Sex: Male
  Weight: 117.4816 kg

DRUGS (1)
  1. ZYPREXA [Suspect]
     Indication: BIPOLAR DISORDER
     Dosage: 30 MG LAST EIGHT DAYS OF LIFE  ONCE A DAY;  20 MG EARLIER   ONCE A DAY
     Dates: start: 20020901, end: 20060325

REACTIONS (4)
  - CARDIAC DISORDER [None]
  - CARDIOMEGALY [None]
  - MYOCARDIAL INFARCTION [None]
  - WEIGHT INCREASED [None]
